FAERS Safety Report 8337230-2 (Version None)
Quarter: 2012Q2

REPORT INFORMATION
  Report Type: 
  Country: None (occurrence: None)
  Receive Date: 20120504
  Receipt Date: 20120430
  Transmission Date: 20120825
  Serious: Yes (Life-Threatening, Other)
  Sender: FDA-Public Use
  Company Number: TR-NOVOPROD-350701

PATIENT
  Age: 51 Year
  Sex: Male
  Weight: 77.9 kg

DRUGS (1)
  1. LIRAGLUTIDE FLEXPEN [Suspect]
     Indication: TYPE 2 DIABETES MELLITUS
     Dosage: 1.8 MG, QD
     Route: 058
     Dates: start: 20111003, end: 20120425

REACTIONS (1)
  - PANCREATIC ENZYMES INCREASED [None]
